FAERS Safety Report 12047752 (Version 1)
Quarter: 2016Q1

REPORT INFORMATION
  Report Type: Report from Study
  Country: US (occurrence: US)
  Receive Date: 20160208
  Receipt Date: 20160208
  Transmission Date: 20160526
  Serious: No
  Sender: FDA-Public Use
  Company Number: US-ABBVIE-15P-163-1375328-00

PATIENT
  Age: 45 Year
  Sex: Female

DRUGS (1)
  1. HUMIRA [Suspect]
     Active Substance: ADALIMUMAB
     Indication: RHEUMATOID ARTHRITIS
     Route: 065

REACTIONS (12)
  - Joint swelling [Unknown]
  - Drug ineffective [Not Recovered/Not Resolved]
  - Rheumatoid arthritis [Recovered/Resolved]
  - Fatigue [Unknown]
  - Paraesthesia [Unknown]
  - Headache [Unknown]
  - Arthralgia [Unknown]
  - Mobility decreased [Unknown]
  - Memory impairment [Unknown]
  - Malaise [Unknown]
  - Anaemia [Recovered/Resolved]
  - Malaise [Recovered/Resolved]

NARRATIVE: CASE EVENT DATE: 20150325
